FAERS Safety Report 15960855 (Version 2)
Quarter: 2019Q1

REPORT INFORMATION
  Report Type: Spontaneous
  Country: US (occurrence: US)
  Receive Date: 20190214
  Receipt Date: 20190327
  Transmission Date: 20190417
  Serious: Yes (Death, Other)
  Sender: FDA-Public Use
  Company Number: US-PFIZER INC-2019054348

PATIENT
  Age: 79 Year
  Sex: Female
  Weight: 73.9 kg

DRUGS (10)
  1. ZESTRIL [Concomitant]
     Active Substance: LISINOPRIL
     Dosage: 20 MG, UNK
  2. MYRBETRIQ [Concomitant]
     Active Substance: MIRABEGRON
     Dosage: 25 MG, UNK
  3. ESTRACE [Concomitant]
     Active Substance: ESTRADIOL
     Dosage: 1 MG, UNK
  4. TETRACYCLINE HCL [Suspect]
     Active Substance: TETRACYCLINE HYDROCHLORIDE
     Dosage: UNK
  5. MELATONIN [Concomitant]
     Active Substance: MELATONIN
     Dosage: 10 MG, UNK
  6. LYRICA [Concomitant]
     Active Substance: PREGABALIN
     Dosage: 75 MG, UNK
  7. ASPIRIN. [Concomitant]
     Active Substance: ASPIRIN
     Dosage: 81 MG, UNK
  8. DICLOFENAC SODIUM. [Concomitant]
     Active Substance: DICLOFENAC SODIUM
     Dosage: 75 MG, UNK
  9. METAMUCIL [Concomitant]
     Active Substance: PLANTAGO SEED
     Dosage: 0.52 G, UNK
  10. MAGNESIUM OXIDE. [Concomitant]
     Active Substance: MAGNESIUM OXIDE
     Dosage: 500 MG, UNK

REACTIONS (3)
  - Drug hypersensitivity [Unknown]
  - Abdominal discomfort [Unknown]
  - Death [Fatal]

NARRATIVE: CASE EVENT DATE: 20190220
